FAERS Safety Report 21769609 (Version 3)
Quarter: 2023Q1

REPORT INFORMATION
  Report Type: Spontaneous
  Country: US (occurrence: None)
  Receive Date: 20221223
  Receipt Date: 20230116
  Transmission Date: 20230418
  Serious: Yes (Hospitalization)
  Sender: FDA-Public Use
  Company Number: US-ROCHE-3244684

PATIENT
  Age: 8 Month
  Sex: Male

DRUGS (2)
  1. EVRYSDI [Suspect]
     Active Substance: RISDIPLAM
     Indication: Spinal muscular atrophy
     Route: 065
     Dates: start: 20220823
  2. TAMIFLU [Suspect]
     Active Substance: OSELTAMIVIR PHOSPHATE
     Indication: Influenza
     Dosage: 5 DAY COURSE
     Route: 065

REACTIONS (3)
  - Influenza [Recovering/Resolving]
  - Cough [Unknown]
  - Streptococcus test positive [Recovered/Resolved]

NARRATIVE: CASE EVENT DATE: 20221123
